FAERS Safety Report 25517283 (Version 1)
Quarter: 2025Q3

REPORT INFORMATION
  Report Type: Spontaneous
  Country: EU (occurrence: EU)
  Receive Date: 20250704
  Receipt Date: 20250704
  Transmission Date: 20251021
  Serious: Yes (Other)
  Sender: AUROBINDO
  Company Number: EU-RDY-DEU/2025/06/008617

PATIENT
  Age: 12 Year
  Sex: Male

DRUGS (4)
  1. GABAPENTIN [Suspect]
     Active Substance: GABAPENTIN
     Indication: Kernicterus
     Route: 065
  2. BACLOFEN [Concomitant]
     Active Substance: BACLOFEN
     Indication: Kernicterus
     Route: 065
  3. TETRABENAZINE [Concomitant]
     Active Substance: TETRABENAZINE
     Indication: Kernicterus
     Route: 065
  4. TRIHEXYPHENIDYL [Concomitant]
     Active Substance: TRIHEXYPHENIDYL
     Indication: Kernicterus
     Route: 065

REACTIONS (1)
  - Drug ineffective for unapproved indication [Unknown]
